FAERS Safety Report 7237664-3 (Version None)
Quarter: 2011Q1

REPORT INFORMATION
  Report Type: 
  Country: None (occurrence: None)
  Receive Date: 20110121
  Receipt Date: 20110106
  Transmission Date: 20110831
  Serious: Yes (Hospitalization, Other)
  Sender: FDA-Public Use
  Company Number: US-ROCHE-731163

PATIENT
  Sex: Female
  Weight: 47.6 kg

DRUGS (1)
  1. ACCUTANE [Suspect]
     Indication: ACNE
     Route: 048
     Dates: start: 19850101

REACTIONS (10)
  - GASTROINTESTINAL INJURY [None]
  - DEPRESSION [None]
  - CROHN'S DISEASE [None]
  - SUICIDE ATTEMPT [None]
  - MEGACOLON [None]
  - POST-TRAUMATIC STRESS DISORDER [None]
  - SELF-INJURIOUS IDEATION [None]
  - ANXIETY DISORDER [None]
  - COLITIS [None]
  - INFLAMMATORY BOWEL DISEASE [None]
